FAERS Safety Report 5301722-0 (Version None)
Quarter: 2007Q2

REPORT INFORMATION
  Report Type: 
  Country: None (occurrence: None)
  Receive Date: 20070419
  Receipt Date: 20070409
  Transmission Date: 20071010
  Serious: Yes (Hospitalization)
  Sender: FDA-Public Use
  Company Number: US-JNJFOC-20070205369

PATIENT
  Sex: Male
  Weight: 47.63 kg

DRUGS (6)
  1. FENTANYL TRANSDERMAL SYSTEM [Suspect]
     Indication: FIBROMYALGIA
     Route: 062
  2. NORVASC [Concomitant]
     Indication: HYPERTENSION
     Route: 048
  3. PERCOCET [Concomitant]
     Indication: PAIN
     Dosage: 10/650MG, EVERY 6 HOURS AS NEEDED
     Route: 048
  4. XANAX [Concomitant]
     Indication: ANXIETY
     Route: 048
  5. LISINOPRIL [Concomitant]
     Indication: HYPERTENSION
     Route: 048
  6. COMBIVENT [Concomitant]
     Indication: EMPHYSEMA
     Dosage: 2 DOSES = 2 PUFFS
     Route: 055

REACTIONS (3)
  - HYPERTENSION [None]
  - OXYGEN SATURATION DECREASED [None]
  - RASH [None]
